FAERS Safety Report 17012386 (Version 4)
Quarter: 2020Q1

REPORT INFORMATION
  Report Type: Spontaneous
  Country: US (occurrence: US)
  Receive Date: 20191108
  Receipt Date: 20200306
  Transmission Date: 20200409
  Serious: No
  Sender: FDA-Public Use
  Company Number: US-ACTELION-A-NJ2019-197836

PATIENT
  Age: 78 Year
  Sex: Female
  Weight: 54.88 kg

DRUGS (6)
  1. OPSUMIT [Concomitant]
     Active Substance: MACITENTAN
  2. AMLODIPINE [Concomitant]
     Active Substance: AMLODIPINE BESYLATE
  3. UPTRAVI [Suspect]
     Active Substance: SELEXIPAG
     Indication: PULMONARY ARTERIAL HYPERTENSION
     Dosage: 600 MCG, BID
     Route: 048
  4. UPTRAVI [Suspect]
     Active Substance: SELEXIPAG
     Dosage: 400 MCG, BID
     Route: 048
     Dates: start: 20191025
  5. UPTRAVI [Suspect]
     Active Substance: SELEXIPAG
     Dosage: 800 MCG, BID
     Route: 048
  6. UPTRAVI [Suspect]
     Active Substance: SELEXIPAG
     Dosage: 400 MCG, BID
     Route: 048

REACTIONS (7)
  - Arthritis [Not Recovered/Not Resolved]
  - Vision blurred [Unknown]
  - Neck pain [Unknown]
  - Dyspnoea [Unknown]
  - Joint swelling [Not Recovered/Not Resolved]
  - Headache [Unknown]
  - Pain [Unknown]

NARRATIVE: CASE EVENT DATE: 20191025
